FAERS Safety Report 4811196-1 (Version None)
Quarter: 2005Q4

REPORT INFORMATION
  Report Type: 
  Country: None (occurrence: None)
  Receive Date: 20051027
  Receipt Date: 20051020
  Transmission Date: 20060501
  Serious: Yes (Hospitalization)
  Sender: FDA-Public Use
  Company Number: US-JNJFOC-20050404311

PATIENT
  Sex: Female
  Weight: 77.11 kg

DRUGS (6)
  1. DURAGESIC-100 [Suspect]
     Route: 062
  2. DURAGESIC-100 [Suspect]
     Route: 062
  3. OXYCODONE [Concomitant]
     Indication: BACK PAIN
  4. BACLOFEN [Concomitant]
  5. IRON [Concomitant]
     Route: 048
  6. NEXIUM [Concomitant]

REACTIONS (5)
  - DEHYDRATION [None]
  - DIARRHOEA [None]
  - DRUG WITHDRAWAL SYNDROME [None]
  - VOCAL CORD INFLAMMATION [None]
  - VOMITING [None]
